FAERS Safety Report 9909192 (Version 1)
Quarter: 2014Q1

REPORT INFORMATION
  Report Type: Spontaneous
  Country: US (occurrence: None)
  Receive Date: 20140214
  Receipt Date: 20140214
  Transmission Date: 20141002
  Serious: No
  Sender: FDA-Public Use
  Company Number: None

PATIENT
  Age: 30 Year
  Sex: Male

DRUGS (3)
  1. TRAZODONE [Suspect]
     Dosage: 200        PO
     Route: 048
  2. ZOLPIDEM [Concomitant]
  3. QUETIAPINE [Concomitant]

REACTIONS (1)
  - Priapism [None]
